FAERS Safety Report 4717382-3 (Version None)
Quarter: 2005Q3

REPORT INFORMATION
  Report Type: 
  Country: None (occurrence: None)
  Receive Date: 20050715
  Receipt Date: 20050707
  Transmission Date: 20060218
  Serious: Yes (Other)
  Sender: FDA-Public Use
  Company Number: 2005098394

PATIENT
  Age: 30 Year
  Sex: Male
  Weight: 86.1834 kg

DRUGS (3)
  1. ZOLOFT [Suspect]
     Indication: DEPRESSION
     Dosage: 25 MG (25 MG, 1 IN 1 D), ORAL
     Route: 048
     Dates: start: 20021001, end: 20021001
  2. VIAGRA [Suspect]
     Indication: SEXUAL DYSFUNCTION
     Dosage: (100 MG), ORAL
     Route: 048
     Dates: start: 20030101
  3. LEVOXYL [Concomitant]
     Indication: THYROID DISORDER
     Dosage: 100 MCG (100 MCG, 1 IN 1 D), ORAL
     Route: 048
     Dates: start: 20041201

REACTIONS (12)
  - CONDITION AGGRAVATED [None]
  - DEPRESSION [None]
  - DRUG INEFFECTIVE [None]
  - DRUG INTERACTION [None]
  - ECONOMIC PROBLEM [None]
  - FEELING HOT [None]
  - HYPERTHYROIDISM [None]
  - HYPOAESTHESIA [None]
  - LOSS OF EMPLOYMENT [None]
  - LOSS OF LIBIDO [None]
  - PENIS DISORDER [None]
  - WEIGHT DECREASED [None]
